FAERS Safety Report 19321715 (Version 1)
Quarter: 2021Q2

REPORT INFORMATION
  Report Type: Spontaneous
  Country: US (occurrence: US)
  Receive Date: 20210528
  Receipt Date: 20210528
  Transmission Date: 20210717
  Serious: No
  Sender: FDA-Public Use
  Company Number: US-ELI_LILLY_AND_COMPANY-US202105000070

PATIENT
  Sex: Female

DRUGS (1)
  1. TRULICITY [Suspect]
     Active Substance: DULAGLUTIDE
     Indication: CARDIOVASCULAR EVENT PROPHYLAXIS
     Dosage: 1.5 MG, UNKNOWN
     Route: 058

REACTIONS (4)
  - Off label use [Unknown]
  - Blood glucose increased [Unknown]
  - Anxiety [Unknown]
  - Wrong patient received product [Unknown]
